FAERS Safety Report 7569578-3 (Version None)
Quarter: 2011Q2

REPORT INFORMATION
  Report Type: 
  Country: None (occurrence: None)
  Receive Date: 20110621
  Receipt Date: 20110621
  Transmission Date: 20111010
  Serious: Yes (Hospitalization)
  Sender: FDA-Public Use
  Company Number: None

PATIENT
  Sex: Male
  Weight: 65.6 kg

DRUGS (11)
  1. SUNITINIB MALATE [Suspect]
     Indication: RENAL CANCER METASTATIC
     Dosage: 50MG PO QDX28 DAYS/6WKS
     Dates: start: 20110314, end: 20110522
  2. MULTI-VITAMIN [Concomitant]
  3. NYSTATIN ORAL SUSPENSION [Concomitant]
  4. CRESTOR [Concomitant]
  5. VITAMIN D [Concomitant]
  6. PREVACID [Concomitant]
  7. ZOFRAN [Concomitant]
  8. LIDOCAINE VISOUS [Concomitant]
  9. OMEGA-3 VITAMIN [Concomitant]
  10. PRAMOXINE-HYDROCORTISONE [Concomitant]
  11. COMPAZINE [Concomitant]

REACTIONS (1)
  - GASTROINTESTINAL HAEMORRHAGE [None]
